FAERS Safety Report 8123712-5 (Version None)
Quarter: 2012Q1

REPORT INFORMATION
  Report Type: 
  Country: None (occurrence: None)
  Receive Date: 20120208
  Receipt Date: 20120127
  Transmission Date: 20120608
  Serious: Yes (Hospitalization)
  Sender: FDA-Public Use
  Company Number: IT-ROCHE-1037069

PATIENT
  Sex: Male

DRUGS (5)
  1. TRAMADOL HCL [Concomitant]
     Dates: start: 20111031, end: 20111119
  2. CEFTRIAXONE [Concomitant]
  3. RIFAXIMIN [Concomitant]
     Dates: start: 20110919, end: 20110922
  4. NAPROXEN SODIUM [Suspect]
     Indication: PRODUCT USED FOR UNKNOWN INDICATION
     Route: 048
     Dates: start: 20111009, end: 20111109
  5. FLUPIRTINE MALEATE [Suspect]
     Indication: PRODUCT USED FOR UNKNOWN INDICATION
     Route: 048
     Dates: start: 20110909, end: 20111109

REACTIONS (2)
  - NORMOCHROMIC NORMOCYTIC ANAEMIA [None]
  - LEUKOPENIA [None]
